FAERS Safety Report 6448032-6 (Version None)
Quarter: 2009Q4

REPORT INFORMATION
  Report Type: 
  Country: None (occurrence: None)
  Receive Date: 20091120
  Receipt Date: 20091111
  Transmission Date: 20100525
  Serious: Yes (Other)
  Sender: FDA-Public Use
  Company Number: US-ASTRAZENECA-2007UW14012

PATIENT
  Age: 908 Month
  Sex: Male
  Weight: 81.6 kg

DRUGS (22)
  1. SEROQUEL [Suspect]
     Indication: SLEEP DISORDER
     Dosage: UPTO 1200 MG
     Route: 048
     Dates: start: 20010501, end: 20011201
  2. SEROQUEL [Suspect]
     Indication: BIPOLAR DISORDER
     Dosage: UPTO 1200 MG
     Route: 048
     Dates: start: 20010501, end: 20011201
  3. SEROQUEL [Suspect]
     Indication: DEPRESSION
     Dosage: UPTO 1200 MG
     Route: 048
     Dates: start: 20010501, end: 20011201
  4. SEROQUEL [Suspect]
     Indication: ANXIETY
     Dosage: UPTO 1200 MG
     Route: 048
     Dates: start: 20010501, end: 20011201
  5. SEROQUEL [Suspect]
     Dosage: UPTO 1200 MG
     Route: 048
     Dates: start: 20030101
  6. SEROQUEL [Suspect]
     Dosage: UPTO 1200 MG
     Route: 048
     Dates: start: 20030101
  7. SEROQUEL [Suspect]
     Dosage: UPTO 1200 MG
     Route: 048
     Dates: start: 20030101
  8. SEROQUEL [Suspect]
     Dosage: UPTO 1200 MG
     Route: 048
     Dates: start: 20030101
  9. RISPERDAL [Concomitant]
     Indication: BIPOLAR DISORDER
     Dates: start: 20010528, end: 20020101
  10. RISPERDAL [Concomitant]
     Indication: DEPRESSION
     Dates: start: 20010528, end: 20020101
  11. RISPERDAL [Concomitant]
     Indication: ANXIETY
     Dates: start: 20010528, end: 20020101
  12. RISPERDAL [Concomitant]
     Dates: start: 20010628, end: 20020101
  13. RISPERDAL [Concomitant]
     Dates: start: 20010628, end: 20020101
  14. RISPERDAL [Concomitant]
     Dates: start: 20010628, end: 20020101
  15. ABILIFY [Concomitant]
  16. HALDOL [Concomitant]
  17. STELAZINE [Concomitant]
  18. THORAZINE [Concomitant]
  19. TRILAFON [Concomitant]
  20. PAXIL [Concomitant]
  21. ZOLOFT [Concomitant]
  22. ZANXAX [Concomitant]

REACTIONS (5)
  - DIABETES MELLITUS [None]
  - DIABETIC NEUROPATHY [None]
  - NEUROPATHY PERIPHERAL [None]
  - TYPE 1 DIABETES MELLITUS [None]
  - TYPE 2 DIABETES MELLITUS [None]
